FAERS Safety Report 4445771-3 (Version None)
Quarter: 2004Q3

REPORT INFORMATION
  Report Type: 
  Country: None (occurrence: None)
  Receive Date: 20040903
  Receipt Date: 20040824
  Transmission Date: 20050211
  Serious: Yes (Death, Life-Threatening)
  Sender: FDA-Public Use
  Company Number: 2004-BP-07128AU

PATIENT
  Age: 66 Year
  Sex: Female

DRUGS (9)
  1. MOBIC [Suspect]
     Dosage: 15 MG (15 MG, 15 MG DAILY)  (DURATION: LONG TERM-NR)
     Route: 048
  2. LEFLUNOMIDE [Suspect]
     Dosage: 20 MG  (NR, 20 MG DAILY)  (DURATION: LONG TERM-NR)
     Route: 048
  3. HYDROXYCHLOROQUINE (HYDROXYCHLOROQUINE) (TA) [Suspect]
     Dosage: 200 MG (NR, 200 MG DAILY) PO  (DURATION: LONG TERM-NR)
     Route: 048
  4. METHOTREXATE (METHOTREXATE) (NR) [Suspect]
     Dosage: NR  (NR, 10 MG WEEKLY)  (DURATION: LONG TERM-NR)
  5. PREDNISOLONE [Suspect]
     Dosage: 7 MG (NR, 7 MG DAILY)  (DURATION: LONG TERM-NR)
     Route: 048
  6. ESOMEPRAZOLE (ESOMEPRAZOLE) (NR) [Suspect]
     Dosage: 40 MG   (DURATION: LONG TERM-NR)
  7. CLOPIDOGREL (CLOPIDOGREL) [Concomitant]
  8. DOTHIEP (DOTHIEPIN) [Concomitant]
  9. ATENOLOL [Concomitant]

REACTIONS (2)
  - PANCYTOPENIA [None]
  - RENAL IMPAIRMENT [None]
